FAERS Safety Report 6670638 (Version 3)
Quarter: 2015Q4

REPORT INFORMATION
  Report Type: Report from Study
  Country: JP (occurrence: JP)
  Receive Date: 20080618
  Receipt Date: 20151210
  Transmission Date: 20160305
  Serious: Yes (Death)
  Sender: FDA-Public Use
  Company Number: JP-BAYER-200810994BYL

PATIENT
  Age: 54 Year
  Sex: Male
  Weight: 58.5 kg

DRUGS (5)
  1. DUROTEP [Concomitant]
     Active Substance: FENTANYL
     Dosage: 1 TIME/3 DAYS
     Route: 062
     Dates: start: 20080418, end: 20080514
  2. NEXAVAR [Suspect]
     Active Substance: SORAFENIB
     Indication: RENAL CELL CARCINOMA
     Route: 048
     Dates: start: 20080418, end: 20080513
  3. MOBIC [Concomitant]
     Active Substance: MELOXICAM
     Route: 048
     Dates: start: 20080418, end: 20080513
  4. DECADRON [DEXAMETHASONE] [Concomitant]
     Indication: DECREASED APPETITE
     Dosage: 1 MG (DAILY DOSE), , ORAL
     Route: 048
     Dates: start: 20080418, end: 20080513
  5. ZOMETA [Concomitant]
     Active Substance: ZOLEDRONIC ACID
     Indication: HYPERCALCAEMIA
     Route: 065

REACTIONS (3)
  - Palmar-plantar erythrodysaesthesia syndrome [Not Recovered/Not Resolved]
  - Stomatitis [Recovering/Resolving]
  - Lung infection [Fatal]

NARRATIVE: CASE EVENT DATE: 20080420
